FAERS Safety Report 8077934-2 (Version None)
Quarter: 2012Q1

REPORT INFORMATION
  Report Type: 
  Country: None (occurrence: None)
  Receive Date: 20120127
  Receipt Date: 20110105
  Transmission Date: 20120608
  Serious: No
  Sender: FDA-Public Use
  Company Number: US-ABBOTT-11P-163-0695369-00

PATIENT
  Age: 59 Year
  Sex: Female

DRUGS (8)
  1. METFORMIN HCL [Concomitant]
     Indication: DIABETES MELLITUS
     Route: 048
  2. HUMIRA [Suspect]
     Indication: PSORIASIS
     Dates: start: 20101101
  3. SEROQUEL [Concomitant]
     Indication: BIPOLAR DISORDER
     Dosage: 300MG 2 TABLETS DAILY
     Route: 048
  4. LITHIUM CARBONATE [Concomitant]
     Indication: BIPOLAR DISORDER
     Dosage: 300MG 2 TABLETS DAILY
     Route: 048
  5. TRAZODONE HCL [Concomitant]
     Indication: BIPOLAR DISORDER
     Route: 048
  6. CRESTOR [Concomitant]
     Indication: BLOOD CHOLESTEROL INCREASED
     Route: 048
  7. NEXIUM [Concomitant]
     Indication: GASTROOESOPHAGEAL REFLUX DISEASE
     Route: 048
  8. WELLBUTRIN [Concomitant]
     Indication: EX-TOBACCO USER
     Route: 048

REACTIONS (1)
  - INJECTION SITE PAIN [None]
